FAERS Safety Report 18040342 (Version 1)
Quarter: 2020Q3

REPORT INFORMATION
  Report Type: Spontaneous
  Country: FR (occurrence: FR)
  Receive Date: 20200717
  Receipt Date: 20200717
  Transmission Date: 20201103
  Serious: Yes (Death, Congenital Anomaly, Other)
  Sender: FDA-Public Use
  Company Number: NVSC2020FR200385

PATIENT
  Age: 1 Day
  Weight: 1.71 kg

DRUGS (2)
  1. CO?TAREG 160/12.5 MG [Suspect]
     Active Substance: HYDROCHLOROTHIAZIDE\VALSARTAN
     Indication: FOETAL EXPOSURE DURING PREGNANCY
     Dosage: UNK (MATERNAL DOSE)
     Route: 064
     Dates: start: 20191125, end: 20200527
  2. CERAZETTE [Concomitant]
     Indication: FOETAL EXPOSURE DURING PREGNANCY
     Dosage: UNK (MATERNAL DOSE)
     Route: 064
     Dates: start: 20191125, end: 20200527

REACTIONS (2)
  - Oligohydramnios [Fatal]
  - Renal aplasia [Fatal]

NARRATIVE: CASE EVENT DATE: 20200608
